FAERS Safety Report 21365981 (Version 1)
Quarter: 2022Q3

REPORT INFORMATION
  Report Type: Spontaneous
  Country: GB (occurrence: GB)
  Receive Date: 20220922
  Receipt Date: 20220922
  Transmission Date: 20221027
  Serious: Yes (Disabling, Other)
  Sender: FDA-Public Use
  Company Number: GB-BAYER-2022A129780

PATIENT
  Age: 92 Year
  Sex: Female

DRUGS (8)
  1. AFLIBERCEPT [Suspect]
     Active Substance: AFLIBERCEPT
     Indication: Neovascular age-related macular degeneration
     Dosage: 50 UL, 1X
     Route: 031
     Dates: start: 20191020, end: 20191020
  2. AFLIBERCEPT [Suspect]
     Active Substance: AFLIBERCEPT
     Dosage: 50 UL, 1X
     Route: 031
     Dates: start: 20200310, end: 20200310
  3. AFLIBERCEPT [Suspect]
     Active Substance: AFLIBERCEPT
     Dosage: 50 UL, 1X
     Route: 031
     Dates: start: 20200423, end: 20200423
  4. AFLIBERCEPT [Suspect]
     Active Substance: AFLIBERCEPT
     Dosage: 50 UL, 1X
     Route: 031
     Dates: start: 20191230, end: 20191230
  5. AFLIBERCEPT [Suspect]
     Active Substance: AFLIBERCEPT
     Dosage: 50 UL, 1X
     Route: 031
     Dates: start: 20191119, end: 20191119
  6. AFLIBERCEPT [Suspect]
     Active Substance: AFLIBERCEPT
     Dosage: 50 UL, 1X
     Route: 031
     Dates: start: 20200629, end: 20200629
  7. AFLIBERCEPT [Suspect]
     Active Substance: AFLIBERCEPT
     Dosage: 50 UL, 1X
     Route: 031
     Dates: start: 20200907, end: 20200907
  8. AFLIBERCEPT [Suspect]
     Active Substance: AFLIBERCEPT
     Dosage: 50 UL, 1X
     Route: 031
     Dates: start: 20201014, end: 20201014

REACTIONS (1)
  - Retinal oedema [Not Recovered/Not Resolved]

NARRATIVE: CASE EVENT DATE: 20200629
